FAERS Safety Report 24067175 (Version 4)
Quarter: 2024Q4

REPORT INFORMATION
  Report Type: Spontaneous
  Country: US (occurrence: US)
  Receive Date: 20240709
  Receipt Date: 20241017
  Transmission Date: 20250115
  Serious: No
  Sender: ROCHE
  Company Number: US-ROCHE-3500126

PATIENT
  Sex: Male

DRUGS (2)
  1. HEMLIBRA [Suspect]
     Active Substance: EMICIZUMAB-KXWH
     Indication: Factor VIII deficiency
     Dosage: 105 MG/ 0.7 ML?85 MG (0.6/56 ML) ONCE WEEKLY FOR 4 WEEK AS LOADING DOSE
     Route: 058
     Dates: start: 202401
  2. HEMLIBRA [Suspect]
     Active Substance: EMICIZUMAB-KXWH
     Dosage: 105 MG/ 0.7 ML
     Route: 058
     Dates: start: 202401

REACTIONS (2)
  - Haemorrhage [Recovered/Resolved]
  - Epistaxis [Unknown]
